FAERS Safety Report 6398430-4 (Version None)
Quarter: 2009Q4

REPORT INFORMATION
  Report Type: 
  Country: None (occurrence: None)
  Receive Date: 20091013
  Receipt Date: 20091005
  Transmission Date: 20100525
  Serious: Yes (Death, Hospitalization, Congenital Anomaly)
  Sender: FDA-Public Use
  Company Number: A0679383A

PATIENT
  Sex: Female
  Weight: 3.2 kg

DRUGS (2)
  1. PAXIL [Suspect]
     Indication: DEPRESSION
     Dates: start: 19950101, end: 19960101
  2. VITAMIN TAB [Concomitant]

REACTIONS (43)
  - ANAEMIA [None]
  - ANAESTHETIC COMPLICATION [None]
  - ATRIAL SEPTAL DEFECT [None]
  - ATRIOVENTRICULAR SEPTAL DEFECT [None]
  - BACTERIAL INFECTION [None]
  - BALANCE DISORDER [None]
  - CACHEXIA [None]
  - CARDIAC FAILURE CONGESTIVE [None]
  - CARDIAC MURMUR [None]
  - CHEST PAIN [None]
  - CONVULSION [None]
  - CULTURE POSITIVE [None]
  - DECREASED APPETITE [None]
  - DEHYDRATION [None]
  - DISEASE COMPLICATION [None]
  - DRUG EXPOSURE DURING PREGNANCY [None]
  - EISENMENGER'S SYNDROME [None]
  - EPISTAXIS [None]
  - FALL [None]
  - HAEMATEMESIS [None]
  - HEAD INJURY [None]
  - HYPERSOMNIA [None]
  - HYPOXIA [None]
  - LETHARGY [None]
  - MATERNAL DRUGS AFFECTING FOETUS [None]
  - MITRAL VALVE INCOMPETENCE [None]
  - MUSCULOSKELETAL DISORDER [None]
  - OTITIS MEDIA [None]
  - PAIN IN EXTREMITY [None]
  - PALPITATIONS [None]
  - PATENT DUCTUS ARTERIOSUS [None]
  - PNEUMONIA [None]
  - PULMONARY HYPERTENSION [None]
  - PULMONARY VALVE INCOMPETENCE [None]
  - PYREXIA [None]
  - RIGHT ATRIAL PRESSURE INCREASED [None]
  - RIGHT VENTRICULAR HYPERTROPHY [None]
  - SUPRAVENTRICULAR EXTRASYSTOLES [None]
  - SUPRAVENTRICULAR TACHYCARDIA [None]
  - SYNCOPE [None]
  - TRICUSPID VALVE INCOMPETENCE [None]
  - UNRESPONSIVE TO STIMULI [None]
  - VENTRICULAR EXTRASYSTOLES [None]
